FAERS Safety Report 15089446 (Version 1)
Quarter: 2018Q3

REPORT INFORMATION
  Report Type: Spontaneous
  Country: NL (occurrence: NL)
  Receive Date: 20180629
  Receipt Date: 20180629
  Transmission Date: 20181010
  Serious: Yes (Other)
  Sender: FDA-Public Use
  Company Number: NL-TEVA-2018-NL-915026

PATIENT
  Age: 57 Year
  Sex: Female
  Weight: 92 kg

DRUGS (2)
  1. OXAZEPAM TEVA TABLET 10MG TABLET, 10 MG (MILLIGRAM)OXAZEPAM TEVA TABLE [Suspect]
     Active Substance: OXAZEPAM
     Indication: ANXIETY
     Dosage: 4 XDAAGS 20 MG
     Route: 065
     Dates: start: 20170318
  2. QUATIAPINE7 [Concomitant]
     Route: 065

REACTIONS (3)
  - Feeling abnormal [Recovering/Resolving]
  - Drug dependence [Recovering/Resolving]
  - Nausea [Recovering/Resolving]

NARRATIVE: CASE EVENT DATE: 20170318
